FAERS Safety Report 5118678-6 (Version None)
Quarter: 2006Q3

REPORT INFORMATION
  Report Type: 
  Country: None (occurrence: None)
  Receive Date: 20060927
  Receipt Date: 20060915
  Transmission Date: 20061208
  Serious: Yes (Other)
  Sender: FDA-Public Use
  Company Number: NLWYE943218SEP06

PATIENT
  Sex: 0

DRUGS (2)
  1. EFFEXOR XR [Suspect]
  2. ALCOHOL (ETHANOL) [Suspect]
     Dosage: NOT WAY TOO MUCH

REACTIONS (2)
  - ACCIDENT [None]
  - ALCOHOL INTERACTION [None]
